FAERS Safety Report 25499307 (Version 7)
Quarter: 2025Q3

REPORT INFORMATION
  Report Type: Spontaneous
  Country: US (occurrence: US)
  Receive Date: 20250701
  Receipt Date: 20250818
  Transmission Date: 20251020
  Serious: No
  Sender: PFIZER
  Company Number: US-PFIZER INC-202500129375

PATIENT
  Age: 66 Year
  Sex: Female

DRUGS (8)
  1. GENOTROPIN [Suspect]
     Active Substance: SOMATROPIN
  2. GENOTROPIN [Suspect]
     Active Substance: SOMATROPIN
  3. GENOTROPIN [Suspect]
     Active Substance: SOMATROPIN
  4. GENOTROPIN [Suspect]
     Active Substance: SOMATROPIN
     Dosage: 0.4 MG, DAILY
     Route: 058
  5. LEVOTHYROXINE [Concomitant]
     Active Substance: LEVOTHYROXINE
     Indication: Thyroid disorder
  6. HYDROCORTISONE [Concomitant]
     Active Substance: HYDROCORTISONE
     Indication: Anxiety
     Dosage: TAKE 3, 30MG PILLS IN MORNING
  7. HYDROCORTISONE [Concomitant]
     Active Substance: HYDROCORTISONE
     Indication: Stress
  8. HYDROCORTISONE [Concomitant]
     Active Substance: HYDROCORTISONE
     Indication: Weight decreased

REACTIONS (12)
  - Hypopituitarism [Not Recovered/Not Resolved]
  - Hypoaesthesia [Unknown]
  - Visual impairment [Unknown]
  - Constipation [Unknown]
  - Wrong technique in device usage process [Unknown]
  - Drug dose omission by device [Unknown]
  - Intentional product use issue [Unknown]
  - Device difficult to use [Unknown]
  - Product use complaint [Unknown]
  - Device leakage [Unknown]
  - Product label issue [Unknown]
  - Accidental exposure to product [Unknown]
